FAERS Safety Report 25708807 (Version 1)
Quarter: 2025Q3

REPORT INFORMATION
  Report Type: Spontaneous
  Country: US (occurrence: US)
  Receive Date: 20250821
  Receipt Date: 20250821
  Transmission Date: 20251021
  Serious: No
  Sender: ABBVIE
  Company Number: US-ABBVIE-6421087

PATIENT
  Age: 23 Year

DRUGS (1)
  1. HUMIRA [Suspect]
     Active Substance: ADALIMUMAB
     Indication: Crohn^s disease
     Route: 058
     Dates: start: 20250815

REACTIONS (3)
  - Injection site discharge [Unknown]
  - Injection site pain [Unknown]
  - Injection site injury [Unknown]

NARRATIVE: CASE EVENT DATE: 20250801
